FAERS Safety Report 5938369-9 (Version None)
Quarter: 2008Q4

REPORT INFORMATION
  Report Type: 
  Country: None (occurrence: None)
  Receive Date: 20081103
  Receipt Date: 20081022
  Transmission Date: 20090506
  Serious: Yes (Death, Hospitalization)
  Sender: FDA-Public Use
  Company Number: PT-BRISTOL-MYERS SQUIBB COMPANY-14289029

PATIENT
  Age: 57 Year
  Sex: Female

DRUGS (2)
  1. LYSODREN [Suspect]
     Indication: ADRENAL CARCINOMA
     Dosage: 21DEC07-16JUL08: 4GM 17JUL08 TO UNK: 2GM UNK TO 12AUG08: 1.5GM
     Route: 048
     Dates: start: 20071221, end: 20080812
  2. HYDROCORTISONE [Concomitant]

REACTIONS (7)
  - ASTHENIA [None]
  - DIARRHOEA [None]
  - DIZZINESS [None]
  - MALIGNANT NEOPLASM PROGRESSION [None]
  - NAUSEA [None]
  - SOMNOLENCE [None]
  - VOMITING [None]
